FAERS Safety Report 17800636 (Version 1)
Quarter: 2020Q2

REPORT INFORMATION
  Report Type: Spontaneous
  Country: CA (occurrence: CA)
  Receive Date: 20200519
  Receipt Date: 20200519
  Transmission Date: 20200714
  Serious: Yes (Other)
  Sender: FDA-Public Use
  Company Number: CA-BAXTER-2020BAX009837

PATIENT
  Age: 83 Year
  Sex: Female
  Weight: 64 kg

DRUGS (1)
  1. 5% DEXTROSE INJECTION [Suspect]
     Active Substance: DEXTROSE
     Indication: MEDICATION DILUTION
     Dosage: DOSAGE FORM: SOLUTION INTRAVENOUS
     Route: 042

REACTIONS (3)
  - Accidental exposure to product [Recovered/Resolved]
  - Device breakage [Recovered/Resolved]
  - Haemorrhage [Recovered/Resolved]
